FAERS Safety Report 13586264 (Version 4)
Quarter: 2017Q4

REPORT INFORMATION
  Report Type: Spontaneous
  Country: US (occurrence: US)
  Receive Date: 20170526
  Receipt Date: 20171213
  Transmission Date: 20180320
  Serious: No
  Sender: FDA-Public Use
  Company Number: US-LUNDBECK-DKLU2031171

PATIENT
  Age: 70 Year
  Sex: Male

DRUGS (2)
  1. NORTHERA [Suspect]
     Active Substance: DROXIDOPA
     Indication: PRODUCT USED FOR UNKNOWN INDICATION
     Route: 065
     Dates: start: 20170514
  2. NORTHERA [Suspect]
     Active Substance: DROXIDOPA
     Route: 065
     Dates: end: 2017

REACTIONS (10)
  - Blood pressure fluctuation [Unknown]
  - Epistaxis [Unknown]
  - Vision blurred [Unknown]
  - Asthenia [Unknown]
  - Blood pressure increased [Unknown]
  - Increased tendency to bruise [Unknown]
  - Dizziness [Unknown]
  - Presyncope [Unknown]
  - Fatigue [Unknown]
  - Blood pressure decreased [Unknown]

NARRATIVE: CASE EVENT DATE: 20170515
